FAERS Safety Report 6004998-X (Version None)
Quarter: 2008Q4

REPORT INFORMATION
  Report Type: 
  Country: None (occurrence: None)
  Receive Date: 20081216
  Receipt Date: 20080723
  Transmission Date: 20090506
  Serious: No
  Sender: FDA-Public Use
  Company Number: US-BAUSCH-2008BL003217

PATIENT
  Age: 4 Year
  Sex: Female

DRUGS (3)
  1. TOBRAMYCIN [Suspect]
     Indication: CONJUNCTIVITIS
     Route: 047
     Dates: start: 20080711, end: 20080714
  2. OFLOXACIN [Suspect]
     Indication: CONJUNCTIVITIS
     Route: 047
     Dates: start: 20080714, end: 20080717
  3. ERYTHROMYCIN 2% SOLUTION [Suspect]
     Indication: CONJUNCTIVITIS
     Route: 047
     Dates: start: 20080717, end: 20080719

REACTIONS (6)
  - CONDITION AGGRAVATED [None]
  - DRUG INEFFECTIVE [None]
  - EYE DISCHARGE [None]
  - EYE SWELLING [None]
  - OCULAR HYPERAEMIA [None]
  - PATHOGEN RESISTANCE [None]
